FAERS Safety Report 11790659 (Version 2)
Quarter: 2016Q1

REPORT INFORMATION
  Report Type: Spontaneous
  Country: US (occurrence: US)
  Receive Date: 20151201
  Receipt Date: 20160202
  Transmission Date: 20160525
  Serious: No
  Sender: FDA-Public Use
  Company Number: US-PFIZER INC-2015374838

PATIENT
  Age: 73 Year
  Sex: Male

DRUGS (2)
  1. SUTENT [Suspect]
     Active Substance: SUNITINIB MALATE
     Indication: BENIGN NEOPLASM
     Dosage: 12.5 MG, 3X/DAY
     Dates: start: 201405
  2. SUTENT [Suspect]
     Active Substance: SUNITINIB MALATE
     Dosage: 12.5 MG, 2X/DAY
     Dates: start: 201502

REACTIONS (3)
  - Glossodynia [Unknown]
  - Glossitis [Unknown]
  - Tongue disorder [Unknown]

NARRATIVE: CASE EVENT DATE: 201405
